FAERS Safety Report 4777536-7 (Version None)
Quarter: 2005Q3

REPORT INFORMATION
  Report Type: 
  Country: None (occurrence: None)
  Receive Date: 20050921
  Receipt Date: 20050909
  Transmission Date: 20060218
  Serious: Yes (Other)
  Sender: FDA-Public Use
  Company Number: 2005123433

PATIENT
  Age: 73 Year
  Sex: Male

DRUGS (2)
  1. ARTHROTEC [Suspect]
     Indication: BACK PAIN
     Dosage: 1540 MG (50 MG, 3 IN 1 D), ORAL
     Route: 048
     Dates: start: 20050809, end: 20050819
  2. ARTHROTEC [Suspect]
     Indication: MONARTHRITIS
     Dosage: 1540 MG (50 MG, 3 IN 1 D), ORAL
     Route: 048
     Dates: start: 20050809, end: 20050819

REACTIONS (2)
  - EYE PAIN [None]
  - VISION BLURRED [None]
